FAERS Safety Report 8756274 (Version 1)
Quarter: 2012Q4

REPORT INFORMATION
  Report Type: 
  Country: DE (occurrence: DE)
  Receive Date: 20120828
  Receipt Date: 20120828
  Transmission Date: 20130627
  Serious: Yes (Hospitalization)
  Sender: FDA-Public Use
  Company Number: PHHY2012DE061898

PATIENT
  Sex: Male

DRUGS (2)
  1. EXFORGE [Suspect]
     Indication: HYPERTENSION
     Dosage: 1 DF(160 mg Vals and 10 mg Amlo), QD
     Route: 048
     Dates: start: 2009
  2. EXFORGE [Suspect]
     Dosage: 1 DF(80 mg Vals and 5 mg Amlo), QD
     Route: 048
     Dates: start: 2011

REACTIONS (3)
  - Inguinal hernia [Unknown]
  - Umbilical hernia [Unknown]
  - Drug intolerance [Unknown]
